FAERS Safety Report 14172209 (Version 3)
Quarter: 2022Q3

REPORT INFORMATION
  Report Type: Report from Study
  Country: US (occurrence: US)
  Receive Date: 20171109
  Receipt Date: 20220714
  Transmission Date: 20221026
  Serious: Yes (Death, Other)
  Sender: FDA-Public Use
  Company Number: US-ACADIA PHARMACEUTICALS INC.-ACA-2017-005678

PATIENT
  Age: 78 Year
  Sex: Female
  Weight: 48 kg

DRUGS (14)
  1. NUPLAZID [Suspect]
     Active Substance: PIMAVANSERIN TARTRATE
     Indication: Parkinson^s disease
     Dosage: 34 MILLIGRAM, QD
     Route: 048
     Dates: start: 20210316, end: 20220527
  2. NUPLAZID [Suspect]
     Active Substance: PIMAVANSERIN TARTRATE
     Indication: Parkinson^s disease psychosis
     Dosage: 34 MG, QD
     Route: 048
     Dates: start: 20170824, end: 20170907
  3. NUPLAZID [Suspect]
     Active Substance: PIMAVANSERIN TARTRATE
     Indication: Hallucination
     Dosage: 34 MG, QD
     Route: 048
     Dates: start: 20170920, end: 20171005
  4. NUPLAZID [Suspect]
     Active Substance: PIMAVANSERIN TARTRATE
     Indication: Delusion
     Dosage: 34 MG, QD
     Route: 048
     Dates: start: 2017
  5. CARBIDOPA AND LEVODOPA [Concomitant]
     Active Substance: CARBIDOPA\LEVODOPA
     Dosage: 25/100 MG, 1 TABLET, TID
  6. CALTRATE [Concomitant]
     Active Substance: CALCIUM CARBONATE
  7. CELEBREX [Concomitant]
     Active Substance: CELECOXIB
  8. LISINOPRIL [Concomitant]
     Active Substance: LISINOPRIL
  9. RANITIDINE [Concomitant]
     Active Substance: RANITIDINE
  10. SINEMET [Concomitant]
     Active Substance: CARBIDOPA\LEVODOPA
  11. CELECOXIB [Concomitant]
     Active Substance: CELECOXIB
  12. PREDNISONE [Concomitant]
     Active Substance: PREDNISONE
  13. RALOXIFENE [Concomitant]
     Active Substance: RALOXIFENE
  14. MYRBETRIQ [Concomitant]
     Active Substance: MIRABEGRON

REACTIONS (4)
  - Death [Recovered/Resolved]
  - Insomnia [Recovered/Resolved]
  - Dizziness [Recovered/Resolved]
  - Confusional state [Not Recovered/Not Resolved]

NARRATIVE: CASE EVENT DATE: 20170824
